FAERS Safety Report 20171817 (Version 1)
Quarter: 2021Q4

REPORT INFORMATION
  Report Type: Spontaneous
  Country: GB (occurrence: GB)
  Receive Date: 20211210
  Receipt Date: 20211210
  Transmission Date: 20220303
  Serious: Yes (Death, Life-Threatening, Disabling, Other)
  Sender: FDA-Public Use
  Company Number: None

PATIENT
  Age: 11 Year
  Sex: Female
  Weight: 62.8 kg

DRUGS (1)
  1. MONTELUKAST [Suspect]
     Active Substance: MONTELUKAST SODIUM
     Indication: Asthma
     Dosage: UNK
     Route: 065
     Dates: start: 20141130, end: 20181015

REACTIONS (10)
  - Anxiety [Recovering/Resolving]
  - Depression suicidal [Recovered/Resolved]
  - Depressed mood [Recovering/Resolving]
  - Depression [Recovering/Resolving]
  - Mood swings [Unknown]
  - Asthma [Unknown]
  - Crying [Unknown]
  - Confusional state [Unknown]
  - Eczema [Unknown]
  - Depressed mood [Unknown]

NARRATIVE: CASE EVENT DATE: 20141130
